FAERS Safety Report 8620858-X (Version None)
Quarter: 2012Q3

REPORT INFORMATION
  Report Type: 
  Country: None (occurrence: None)
  Receive Date: 20120824
  Receipt Date: 20120809
  Transmission Date: 20120928
  Serious: Yes (Hospitalization)
  Sender: FDA-Public Use
  Company Number: JP-VERTEX PHARMACEUTICAL INC.-AE-2012-007249

PATIENT
  Age: 64 Year
  Sex: Male

DRUGS (19)
  1. RIBAVIRIN [Concomitant]
     Dosage: 400 MG, UNK
     Route: 048
     Dates: start: 20120229, end: 20120404
  2. RIBAVIRIN [Concomitant]
     Dosage: 600 UNK, UNK
     Route: 048
     Dates: start: 20120315, end: 20120322
  3. PEG-INTRON [Concomitant]
     Route: 051
     Dates: start: 20120308, end: 20120315
  4. PEG-INTRON [Concomitant]
     Route: 051
     Dates: start: 20120322
  5. RIBAVIRIN [Concomitant]
     Dosage: 400 MG, UNK
     Route: 048
     Dates: start: 20120308, end: 20120404
  6. PEG-INTRON [Concomitant]
     Indication: HEPATITIS C
     Route: 051
     Dates: start: 20120208, end: 20120215
  7. ALLOPURINOL [Concomitant]
     Route: 048
     Dates: start: 20120215
  8. VX-950 [Suspect]
     Dosage: 1500 UNK, UNK
     Route: 048
     Dates: start: 20120215, end: 20120418
  9. PEG-INTRON [Concomitant]
     Route: 051
     Dates: start: 20120215, end: 20120222
  10. REBAMIPIDE [Concomitant]
     Route: 048
     Dates: start: 20120208
  11. LORFENAMIN [Concomitant]
     Route: 048
     Dates: start: 20120208
  12. PEG-INTRON [Concomitant]
     Route: 051
     Dates: start: 20120229, end: 20120229
  13. RIBAVIRIN [Concomitant]
     Indication: HEPATITIS C
     Dosage: 600 MG, UNK
     Route: 048
     Dates: start: 20120208, end: 20120228
  14. RIBAVIRIN [Concomitant]
     Dosage: 200 MG, UNK
     Route: 048
     Dates: start: 20120405, end: 20120411
  15. RIBAVIRIN [Concomitant]
     Dosage: 400 UNK, UNK
     Route: 048
     Dates: start: 20120516, end: 20120725
  16. PRIMPERAN TAB [Concomitant]
     Route: 048
     Dates: start: 20120216
  17. VX-950 [Suspect]
     Indication: HEPATITIS C
     Dosage: 2250 MG, UNK
     Route: 048
     Dates: start: 20120208, end: 20120214
  18. LORFENAMIN [Concomitant]
     Route: 048
     Dates: start: 20120208
  19. REBAMIPIDE [Concomitant]
     Route: 048
     Dates: start: 20120208

REACTIONS (2)
  - MALAISE [None]
  - RASH [None]
